FAERS Safety Report 16945799 (Version 1)
Quarter: 2019Q4

REPORT INFORMATION
  Report Type: Spontaneous
  Country: US (occurrence: US)
  Receive Date: 20191022
  Receipt Date: 20191022
  Transmission Date: 20200122
  Serious: No
  Sender: FDA-Public Use
  Company Number: US-INCYTE CORPORATION-2019IN010162

PATIENT

DRUGS (1)
  1. JAKAFI [Suspect]
     Active Substance: RUXOLITINIB
     Dosage: 10 MILLIGRAM, BID
     Route: 048
     Dates: start: 201908

REACTIONS (7)
  - Dry mouth [Unknown]
  - Lip swelling [Unknown]
  - Swelling [Unknown]
  - Dysgeusia [Unknown]
  - Swelling face [Unknown]
  - Diarrhoea [Unknown]
  - Taste disorder [Unknown]
